FAERS Safety Report 17661678 (Version 4)
Quarter: 2020Q2

REPORT INFORMATION
  Report Type: Spontaneous
  Country: GB (occurrence: GB)
  Receive Date: 20200413
  Receipt Date: 20200501
  Transmission Date: 20200713
  Serious: Yes (Death, Hospitalization, Other)
  Sender: FDA-Public Use
  Company Number: GB-PFIZER INC-2020149080

PATIENT
  Age: 67 Year
  Sex: Female
  Weight: 60 kg

DRUGS (7)
  1. RAPAMUNE [Suspect]
     Active Substance: SIROLIMUS
     Indication: LUNG TRANSPLANT
     Dosage: 3 MG, 1X/DAY
     Dates: start: 20140616
  2. ACICLOVIR ACCORD [Concomitant]
     Indication: HERPES ZOSTER
     Dosage: 400 MG (200MG X 2)
  3. HEPARIN [Suspect]
     Active Substance: HEPARIN SODIUM
     Indication: PROPHYLAXIS
     Dosage: 5 ML
     Dates: start: 20170421
  4. AZITHROMYCIN ANHYDROUS. [Concomitant]
     Active Substance: AZITHROMYCIN ANHYDROUS
     Dosage: 250 MG
     Dates: start: 20140616
  5. PREDNISOLONE. [Concomitant]
     Active Substance: PREDNISOLONE
     Dosage: 5 MG
     Dates: start: 20180116
  6. MYCOPHENOLATE MOFETIL ACTAVIS [Concomitant]
     Active Substance: MYCOPHENOLATE MOFETIL
     Indication: HERPES ZOSTER
     Dosage: 750 MG, 2X/DAY
     Dates: start: 20041004, end: 20191229
  7. ADCAL D3 [Concomitant]
     Active Substance: CALCIUM CARBONATE\CHOLECALCIFEROL
     Dosage: 1500, UNK
     Dates: start: 20140616

REACTIONS (9)
  - Dysphagia [Fatal]
  - Pulmonary haemorrhage [Fatal]
  - Bronchiectasis [Unknown]
  - Pulmonary haemorrhage [Fatal]
  - Pulmonary haemorrhage [Fatal]
  - Medication error [Unknown]
  - Renal impairment [Recovered/Resolved]
  - Pneumonia [Fatal]
  - Pneumonia [Fatal]

NARRATIVE: CASE EVENT DATE: 20170109
